FAERS Safety Report 8338693-9 (Version None)
Quarter: 2012Q2

REPORT INFORMATION
  Report Type: 
  Country: None (occurrence: None)
  Receive Date: 20120504
  Receipt Date: 20120427
  Transmission Date: 20120825
  Serious: Yes (Hospitalization, Other)
  Sender: FDA-Public Use
  Company Number: US-ELI_LILLY_AND_COMPANY-US201204009805

PATIENT
  Age: 37 Year
  Sex: Female

DRUGS (4)
  1. INSULIN [Concomitant]
  2. METFORMIN HCL [Concomitant]
  3. ACTOS [Concomitant]
  4. BYDUREON [Suspect]
     Dosage: 2 MG, WEEKLY (1/W)
     Route: 058

REACTIONS (3)
  - SWELLING [None]
  - CELLULITIS [None]
  - ABSCESS ORAL [None]
